FAERS Safety Report 15576174 (Version 1)
Quarter: 2018Q4

REPORT INFORMATION
  Report Type: Spontaneous
  Country: US (occurrence: US)
  Receive Date: 20181029
  Receipt Date: 20181029
  Transmission Date: 20190205
  Serious: Yes (Hospitalization)
  Sender: FDA-Public Use
  Company Number: None

PATIENT
  Age: 66 Year
  Sex: Female

DRUGS (1)
  1. OPSUMIT [Suspect]
     Active Substance: MACITENTAN
     Route: 048
     Dates: start: 20180901

REACTIONS (6)
  - Epistaxis [None]
  - Dyspnoea [None]
  - Nasal ulcer [None]
  - Wrong dose [None]
  - Headache [None]
  - Device issue [None]

NARRATIVE: CASE EVENT DATE: 20180926
